FAERS Safety Report 25906251 (Version 2)
Quarter: 2025Q4

REPORT INFORMATION
  Report Type: Spontaneous
  Country: JP (occurrence: JP)
  Receive Date: 20251010
  Receipt Date: 20251030
  Transmission Date: 20260118
  Serious: Yes (Death)
  Sender: JAZZ
  Company Number: JP-JAZZ PHARMACEUTICALS-2025-JP-023447

PATIENT
  Age: 29 Year
  Sex: Male

DRUGS (1)
  1. DEFITELIO [Suspect]
     Active Substance: DEFIBROTIDE SODIUM
     Indication: Venoocclusive liver disease
     Dosage: UNK
     Dates: start: 20250910, end: 20250916

REACTIONS (2)
  - Multiple organ dysfunction syndrome [Fatal]
  - Therapeutic product effect incomplete [Fatal]

NARRATIVE: CASE EVENT DATE: 20250910
